FAERS Safety Report 6007848-0 (Version None)
Quarter: 2008Q4

REPORT INFORMATION
  Report Type: 
  Country: None (occurrence: None)
  Receive Date: 20081217
  Receipt Date: 20080703
  Transmission Date: 20090506
  Serious: No
  Sender: FDA-Public Use
  Company Number: US-ASTRAZENECA-2008UW13370

PATIENT
  Age: 80 Year
  Sex: Female
  Weight: 67.1 kg

DRUGS (8)
  1. CRESTOR [Suspect]
     Indication: BLOOD CHOLESTEROL INCREASED
     Route: 048
     Dates: start: 20080612, end: 20080626
  2. CRESTOR [Suspect]
     Route: 048
     Dates: start: 20080626
  3. MAXZIDE [Concomitant]
  4. BENACOR [Concomitant]
  5. SURMONTAL [Concomitant]
  6. CALCIUM [Concomitant]
  7. ASPIRIN [Concomitant]
  8. VITAMINS [Concomitant]

REACTIONS (3)
  - COUGH [None]
  - NASOPHARYNGITIS [None]
  - OROPHARYNGEAL PAIN [None]
